FAERS Safety Report 4816522-5 (Version None)
Quarter: 2005Q4

REPORT INFORMATION
  Report Type: 
  Country: None (occurrence: None)
  Receive Date: 20051101
  Receipt Date: 20051020
  Transmission Date: 20060501
  Serious: Yes (Other)
  Sender: FDA-Public Use
  Company Number: PHEH2005US11704

PATIENT

DRUGS (1)
  1. FEMARA [Suspect]

REACTIONS (1)
  - CONGESTIVE CARDIOMYOPATHY [None]
